FAERS Safety Report 8202834-4 (Version None)
Quarter: 2012Q1

REPORT INFORMATION
  Report Type: 
  Country: None (occurrence: None)
  Receive Date: 20120312
  Receipt Date: 20120312
  Transmission Date: 20120608
  Serious: Yes (Other)
  Sender: FDA-Public Use
  Company Number: None

PATIENT
  Age: 71 Year
  Sex: Female
  Weight: 88 kg

DRUGS (3)
  1. AVELOX [Concomitant]
     Dosage: 400MG
     Route: 042
     Dates: start: 20120302, end: 20120304
  2. AVELOX [Suspect]
     Indication: PNEUMONIA
     Dosage: 400.0 MG
     Route: 042
     Dates: start: 20120302, end: 20120304
  3. AVELOX [Suspect]
     Indication: UPPER RESPIRATORY TRACT INFECTION
     Dosage: 400.0 MG
     Route: 042
     Dates: start: 20120302, end: 20120304

REACTIONS (4)
  - ERYTHEMA [None]
  - VASODILATATION [None]
  - INJECTION SITE SWELLING [None]
  - DERMATITIS [None]
